FAERS Safety Report 7403028-2 (Version None)
Quarter: 2011Q2

REPORT INFORMATION
  Report Type: 
  Country: None (occurrence: None)
  Receive Date: 20110408
  Receipt Date: 20110128
  Transmission Date: 20111010
  Serious: No
  Sender: FDA-Public Use
  Company Number: US-NOVEN-11US001689

PATIENT
  Sex: Female

DRUGS (13)
  1. LEVOXYL [Concomitant]
     Indication: THYROID DISORDER
     Dosage: UNK
     Route: 048
  2. ZANTAC [Concomitant]
     Indication: GASTROOESOPHAGEAL REFLUX DISEASE
     Dosage: UNK
     Route: 048
  3. CENTRUM SILVER                     /01292501/ [Concomitant]
     Indication: VITAMIN SUPPLEMENTATION
     Dosage: 1 QD
     Route: 048
  4. FENTANYL [Suspect]
     Dosage: 12.5 UG, UNKNOWN
     Route: 062
  5. COREG [Concomitant]
     Indication: HYPERTENSION
     Dosage: UNK
     Route: 048
  6. FOSAMAX [Concomitant]
     Indication: OSTEOPOROSIS
     Dosage: UNK
     Route: 048
  7. VITAMIN A [Concomitant]
     Indication: VITAMIN SUPPLEMENTATION
     Dosage: UNK
     Route: 048
  8. FENTANYL [Suspect]
     Indication: OSTEOARTHRITIS
     Dosage: 25 UG, EVERY 72HRS
     Route: 062
     Dates: start: 20110101
  9. ASPIRIN [Concomitant]
     Indication: PRODUCT USED FOR UNKNOWN INDICATION
     Dosage: 81 MG, UNK
     Route: 048
  10. LISINOPRIL [Concomitant]
     Indication: HYPERTENSION
     Dosage: UNK
     Route: 048
  11. XANAX [Concomitant]
     Indication: INSOMNIA
     Dosage: UNK
     Route: 048
  12. CALTRATE                           /00108001/ [Concomitant]
     Indication: OSTEOPOROSIS
     Route: 048
  13. ZOLOFT [Concomitant]
     Indication: PRODUCT USED FOR UNKNOWN INDICATION
     Dosage: UNK
     Route: 048

REACTIONS (6)
  - PRODUCT QUALITY ISSUE [None]
  - SWELLING FACE [None]
  - CYSTITIS [None]
  - JOINT SWELLING [None]
  - INADEQUATE ANALGESIA [None]
  - FLUSHING [None]
